FAERS Safety Report 24548086 (Version 1)
Quarter: 2024Q4

REPORT INFORMATION
  Report Type: Spontaneous
  Country: US (occurrence: US)
  Receive Date: 20241025
  Receipt Date: 20241025
  Transmission Date: 20250115
  Serious: Yes (Hospitalization, Other)
  Sender: Halocarbon Life Sciences
  Company Number: US-HALOCARBON LIFE SCIENCES, LLC-20241000008

PATIENT

DRUGS (1)
  1. SEVOFLURANE [Suspect]
     Active Substance: SEVOFLURANE
     Indication: General anaesthesia

REACTIONS (1)
  - Pulmonary alveolar haemorrhage [Recovered/Resolved]
